FAERS Safety Report 10077849 (Version 1)
Quarter: 2014Q2

REPORT INFORMATION
  Report Type: Spontaneous
  Country: MX (occurrence: MX)
  Receive Date: 20140414
  Receipt Date: 20140414
  Transmission Date: 20141212
  Serious: Yes (Death)
  Sender: FDA-Public Use
  Company Number: MX-UCBSA-118069

PATIENT
  Age: 71 Year
  Sex: Male

DRUGS (2)
  1. VIMPAT [Suspect]
     Indication: EPILEPSY
     Route: 048
     Dates: start: 20140117, end: 20140228
  2. EPAMIN [Concomitant]
     Indication: EPILEPSY
     Dosage: SINCE EVER
     Dates: end: 20140228

REACTIONS (1)
  - Brain neoplasm [Fatal]
